FAERS Safety Report 6601352-4 (Version None)
Quarter: 2010Q1

REPORT INFORMATION
  Report Type: 
  Country: None (occurrence: None)
  Receive Date: 20100225
  Receipt Date: 20100215
  Transmission Date: 20100710
  Serious: Yes (Hospitalization)
  Sender: FDA-Public Use
  Company Number: CN-PFIZER INC-2010020446

PATIENT
  Age: 20 Month
  Sex: Male

DRUGS (2)
  1. ZITHROMAX [Suspect]
     Indication: PNEUMONIA MYCOPLASMAL
     Dosage: HALF TABLET, 1X/DAY
     Route: 048
     Dates: start: 20100213, end: 20100213
  2. ERYTHROMYCIN [Concomitant]
     Indication: PNEUMONIA MYCOPLASMAL
     Dosage: UNK
     Route: 042
     Dates: start: 20100101, end: 20100101

REACTIONS (2)
  - FOOD ALLERGY [None]
  - URTICARIA [None]
